FAERS Safety Report 13119162 (Version 2)
Quarter: 2017Q1

REPORT INFORMATION
  Report Type: Spontaneous
  Country: None (occurrence: US)
  Receive Date: 20170116
  Receipt Date: 20170130
  Transmission Date: 20170428
  Serious: Yes (Life-Threatening, Other)
  Sender: FDA-Public Use
  Company Number: US-STANDARD HOMEOPATHIC COMPANY-1062052

PATIENT
  Age: 16 Month
  Sex: Female
  Weight: 9.09 kg

DRUGS (1)
  1. BABY TEETHING (HYLAND HOMEOPATHIC) [Suspect]
     Active Substance: HOMEOPATHICS
     Indication: TEETHING
     Route: 048
     Dates: start: 2015, end: 20161230

REACTIONS (7)
  - Seizure [None]
  - Constipation [None]
  - Respiratory arrest [None]
  - Anger [None]
  - Insomnia [None]
  - Pulse absent [None]
  - Dyspnoea [None]

NARRATIVE: CASE EVENT DATE: 20161230
